FAERS Safety Report 9012820 (Version 3)
Quarter: 2013Q1

REPORT INFORMATION
  Report Type: Spontaneous
  Country: CL (occurrence: CL)
  Receive Date: 20130114
  Receipt Date: 20130304
  Transmission Date: 20140127
  Serious: Yes (Other)
  Sender: FDA-Public Use
  Company Number: CL-PFIZER INC-2013009217

PATIENT
  Age: 36 Year
  Sex: Male

DRUGS (2)
  1. AZULFIDINE [Suspect]
     Indication: COLITIS ULCERATIVE
     Dosage: 1000 MG, 2X/DAY
     Route: 048
     Dates: start: 2011, end: 201212
  2. AZULFIDINE [Suspect]
     Dosage: UNK

REACTIONS (5)
  - Haemorrhage [Recovered/Resolved]
  - Food aversion [Recovered/Resolved]
  - Pain [Recovered/Resolved]
  - Activities of daily living impaired [Recovered/Resolved]
  - Bedridden [Recovered/Resolved]
